FAERS Safety Report 6121710-4 (Version None)
Quarter: 2009Q1

REPORT INFORMATION
  Report Type: 
  Country: None (occurrence: None)
  Receive Date: 20090313
  Receipt Date: 20090313
  Transmission Date: 20090719
  Serious: Yes (Hospitalization)
  Sender: FDA-Public Use
  Company Number: None

PATIENT
  Age: 59 Year
  Sex: Male
  Weight: 75.7 kg

DRUGS (3)
  1. WARFARIN SODIUM [Suspect]
     Indication: CEREBROVASCULAR ACCIDENT
     Dosage: GM HS PO
     Route: 048
     Dates: start: 20081206
  2. WARFARIN SODIUM [Suspect]
     Indication: THROMBOSIS
     Dosage: GM HS PO
     Route: 048
     Dates: start: 20081206
  3. ENOXAPARIN SODIUM [Suspect]
     Dosage: MG EVERY DAY SQ
     Route: 058
     Dates: start: 20081220, end: 20081223

REACTIONS (5)
  - CEREBRAL HAEMATOMA [None]
  - DYSPHAGIA [None]
  - FACIAL PALSY [None]
  - HAEMORRHAGE [None]
  - INTERNATIONAL NORMALISED RATIO DECREASED [None]
